FAERS Safety Report 19977787 (Version 1)
Quarter: 2021Q4

REPORT INFORMATION
  Report Type: Spontaneous
  Country: US (occurrence: US)
  Receive Date: 20211020
  Receipt Date: 20211020
  Transmission Date: 20220304
  Serious: Yes (Hospitalization)
  Sender: FDA-Public Use
  Company Number: US-CHURCH + DWIGHT CO., INC.-2120811

PATIENT
  Age: 67 Year
  Sex: Female

DRUGS (1)
  1. PEROXIE CARE TARTAR CONTROL HEALTHY GUMS BAKING SODA AND PEROXIDE [Suspect]
     Active Substance: SODIUM FLUORIDE
     Indication: Dental care
     Dates: end: 20211005

REACTIONS (6)
  - Sneezing [Recovered/Resolved]
  - Lip swelling [Recovered/Resolved]
  - Oral mucosal eruption [Recovered/Resolved]
  - Dyspnoea [Recovered/Resolved]
  - Urticaria [Recovered/Resolved]
  - Ear swelling [Recovered/Resolved]

NARRATIVE: CASE EVENT DATE: 20211005
